FAERS Safety Report 8725696 (Version 2)
Quarter: 2013Q4

REPORT INFORMATION
  Report Type: Spontaneous
  Country: GB (occurrence: None)
  Receive Date: 20120727
  Receipt Date: 20131120
  Transmission Date: 20140711
  Serious: Yes (Hospitalization)
  Sender: FDA-Public Use
  Company Number: JPI-P-022649

PATIENT
  Age: 29 Year
  Sex: Female

DRUGS (3)
  1. XYREM [Suspect]
     Indication: CATAPLEXY
     Dosage: 3 GM, 1 D; 3.75 GM, 1 D), ORAL
     Dates: start: 20120622, end: 20120702
  2. MODAFINIL [Concomitant]
  3. VENLAFAXINE [Concomitant]

REACTIONS (3)
  - Anxiety [None]
  - Foreign travel [None]
  - Anxiety [None]
